FAERS Safety Report 23382171 (Version 3)
Quarter: 2024Q1

REPORT INFORMATION
  Report Type: Spontaneous
  Country: US (occurrence: US)
  Receive Date: 20240109
  Receipt Date: 20240306
  Transmission Date: 20240410
  Serious: No
  Sender: FDA-Public Use
  Company Number: US-PFIZER INC-202300451883

PATIENT
  Age: 10 Year
  Sex: Male

DRUGS (1)
  1. GENOTROPIN [Suspect]
     Active Substance: SOMATROPIN
     Indication: Growth hormone deficiency
     Dosage: TAKES 0.6 MONDAY THROUGH SATURDAY AND 0.4 ON SUNDAY ONCE A DAY

REACTIONS (3)
  - Device breakage [Unknown]
  - Device malfunction [Unknown]
  - Device issue [Unknown]
